FAERS Safety Report 21361867 (Version 4)
Quarter: 2023Q1

REPORT INFORMATION
  Report Type: Spontaneous
  Country: US (occurrence: US)
  Receive Date: 20220922
  Receipt Date: 20230315
  Transmission Date: 20230418
  Serious: No
  Sender: FDA-Public Use
  Company Number: US-BIOGEN-2022BI01155678

PATIENT
  Sex: Male

DRUGS (4)
  1. SPINRAZA [Suspect]
     Active Substance: NUSINERSEN
     Indication: Spinal muscular atrophy
     Route: 050
     Dates: start: 20170309
  2. AZITHROMYCIN [Concomitant]
     Active Substance: AZITHROMYCIN
     Indication: Product used for unknown indication
     Route: 050
     Dates: start: 20220214, end: 20220218
  3. FLUTICASONE [Concomitant]
     Active Substance: FLUTICASONE
     Indication: Product used for unknown indication
     Dosage: 110 MICROGRAM INHALER - 2 PUFFS BID - CURRENT
     Route: 050
  4. 3% NACL + ALBUTEROL [Concomitant]
     Indication: Product used for unknown indication
     Dosage: PRN
     Route: 050

REACTIONS (6)
  - Scoliosis [Unknown]
  - Mobility decreased [Unknown]
  - Device issue [Unknown]
  - Accidental underdose [Unknown]
  - Wrong technique in product usage process [Unknown]
  - Complication associated with device [Unknown]

NARRATIVE: CASE EVENT DATE: 20200101
